FAERS Safety Report 24590173 (Version 1)
Quarter: 2024Q4

REPORT INFORMATION
  Report Type: Spontaneous
  Country: US (occurrence: None)
  Receive Date: 20241107
  Receipt Date: 20241107
  Transmission Date: 20250114
  Serious: No
  Sender: Public
  Company Number: None

PATIENT
  Age: 67 Year
  Weight: 111.6 kg

DRUGS (4)
  1. PIPRACIL [Suspect]
     Active Substance: PIPERACILLIN SODIUM
     Indication: Infection
     Dosage: OTHER FREQUENCY : ONCE ONLY;?
     Route: 042
     Dates: start: 20241102, end: 20241102
  2. AZITHROMYCIN [Suspect]
     Active Substance: AZITHROMYCIN
  3. CIPROFLOXACIN [Suspect]
     Active Substance: CIPROFLOXACIN
  4. ASPIRIN [Concomitant]
     Active Substance: ASPIRIN

REACTIONS (1)
  - Tendon pain [None]

NARRATIVE: CASE EVENT DATE: 20241107
